FAERS Safety Report 4544141-7 (Version None)
Quarter: 2005Q1

REPORT INFORMATION
  Report Type: 
  Country: None (occurrence: None)
  Receive Date: 20050104
  Receipt Date: 20041203
  Transmission Date: 20050727
  Serious: Yes (Other)
  Sender: FDA-Public Use
  Company Number: US-GLAXOSMITHKLINE-A0536019A

PATIENT
  Age: 79 Year
  Sex: Male
  Weight: 58.4 kg

DRUGS (9)
  1. COREG [Suspect]
     Indication: VENTRICULAR DYSFUNCTION
     Route: 048
     Dates: start: 20030626
  2. LOVASTATIN [Suspect]
     Route: 048
     Dates: start: 20030626, end: 20040301
  3. CRESTOR [Suspect]
     Route: 048
     Dates: start: 20040721, end: 20041116
  4. ASPIRIN [Concomitant]
     Route: 048
  5. LASIX [Concomitant]
  6. POTASSIUM CHLORIDE [Concomitant]
  7. ALTACE [Concomitant]
     Route: 048
     Dates: start: 20030626, end: 20030901
  8. MONOPRIL [Concomitant]
     Dates: start: 20030901, end: 20040801
  9. ALTACE [Concomitant]
     Route: 048
     Dates: start: 20040801, end: 20041201

REACTIONS (16)
  - AGITATION [None]
  - AMNESIA [None]
  - BLADDER SPASM [None]
  - CARDIAC ANEURYSM [None]
  - DISTURBANCE IN ATTENTION [None]
  - DIZZINESS [None]
  - FREQUENT BOWEL MOVEMENTS [None]
  - GASTROINTESTINAL PAIN [None]
  - INSOMNIA [None]
  - INTESTINAL SPASM [None]
  - MYALGIA [None]
  - PALPITATIONS [None]
  - PARAESTHESIA [None]
  - SENSORY DISTURBANCE [None]
  - TREATMENT NONCOMPLIANCE [None]
  - URETHRAL SPASM [None]
